FAERS Safety Report 9889709 (Version 1)
Quarter: 2014Q1

REPORT INFORMATION
  Report Type: Spontaneous
  Country: SG (occurrence: SG)
  Receive Date: 20140211
  Receipt Date: 20140211
  Transmission Date: 20141002
  Serious: Yes (Other)
  Sender: FDA-Public Use
  Company Number: SG-PFIZER INC-2014037159

PATIENT
  Age: 92 Year
  Sex: Female

DRUGS (2)
  1. PIPERACILLIN/TAZOBACTAM [Suspect]
     Dosage: UNK
     Route: 042
     Dates: start: 20131209, end: 20131213
  2. PIPERACILLIN [Suspect]
     Dosage: UNK
     Route: 042
     Dates: start: 20131209, end: 20131213

REACTIONS (1)
  - Acute generalised exanthematous pustulosis [Not Recovered/Not Resolved]
